FAERS Safety Report 6127299-8 (Version None)
Quarter: 2009Q1

REPORT INFORMATION
  Report Type: 
  Country: None (occurrence: None)
  Receive Date: 20090319
  Receipt Date: 20090306
  Transmission Date: 20090719
  Serious: Yes (Other)
  Sender: FDA-Public Use
  Company Number: 232553K09USA

PATIENT
  Age: 50 Year
  Sex: Male
  Weight: 76 kg

DRUGS (3)
  1. REBIF [Suspect]
     Indication: MULTIPLE SCLEROSIS
     Dosage: 44 MCG, 3 IN 1 WEEKS, SUBCUTANEOUS
     Route: 058
     Dates: start: 20070504
  2. ALLOPURINOL [Concomitant]
  3. GLIPIZIDE [Concomitant]

REACTIONS (3)
  - BLADDER CANCER [None]
  - BLOOD GLUCOSE INCREASED [None]
  - FALL [None]
